FAERS Safety Report 5764753-2 (Version None)
Quarter: 2008Q2

REPORT INFORMATION
  Report Type: 
  Country: None (occurrence: None)
  Receive Date: 20080611
  Receipt Date: 20080602
  Transmission Date: 20081010
  Serious: Yes (Life-Threatening, Other)
  Sender: FDA-Public Use
  Company Number: PL-MERCK-0806POL00001

PATIENT
  Age: 4 Year
  Sex: Female

DRUGS (8)
  1. SINGULAIR [Suspect]
     Indication: ASTHMA
     Route: 048
     Dates: start: 20080515, end: 20080516
  2. SINGULAIR [Suspect]
     Indication: DERMATITIS ATOPIC
     Route: 048
     Dates: start: 20080515, end: 20080516
  3. CETIRIZINE HYDROCHLORIDE [Concomitant]
     Indication: DERMATITIS ATOPIC
     Route: 048
  4. CETIRIZINE HYDROCHLORIDE [Concomitant]
     Indication: ASTHMA
     Route: 048
  5. BUDESONIDE [Concomitant]
     Indication: DERMATITIS ATOPIC
     Dates: end: 20080501
  6. BUDESONIDE [Concomitant]
     Indication: ASTHMA
     Dates: end: 20080501
  7. CROMOLYN SODIUM [Concomitant]
     Indication: FOOD ALLERGY
     Route: 048
     Dates: start: 20080501
  8. HYDROXYZINE HYDROCHLORIDE [Concomitant]
     Indication: PRURITUS
     Route: 065
     Dates: start: 20080501

REACTIONS (4)
  - AGITATION [None]
  - COUGH [None]
  - DYSPNOEA [None]
  - SLEEP DISORDER [None]
